FAERS Safety Report 14510774 (Version 3)
Quarter: 2018Q2

REPORT INFORMATION
  Report Type: Report from Study
  Country: JP (occurrence: JP)
  Receive Date: 20180209
  Receipt Date: 20180502
  Transmission Date: 20180711
  Serious: Yes (Death, Hospitalization)
  Sender: FDA-Public Use
  Company Number: JP-COLLEGIUM PHARMACEUTICAL, INC.-JP-2017DEP002245

PATIENT
  Age: 61 Year
  Sex: Female
  Weight: 51 kg

DRUGS (5)
  1. OXYCODONE HYDROCHLORIDE. [Concomitant]
     Active Substance: OXYCODONE HYDROCHLORIDE
     Dosage: UNK
     Dates: start: 20170421, end: 20170501
  2. OXYCODONE HYDROCHLORIDE. [Concomitant]
     Active Substance: OXYCODONE HYDROCHLORIDE
     Indication: CANCER PAIN
     Dosage: UNK
     Dates: start: 20170502, end: 20170504
  3. NOVAMIN                            /00013301/ [Concomitant]
     Active Substance: PROCHLORPERAZINE
     Indication: PROPHYLAXIS
     Dosage: UNK
     Dates: start: 20170421, end: 20170507
  4. LOXOPROFEN SODIUM [Concomitant]
     Active Substance: LOXOPROFEN SODIUM
     Indication: CANCER PAIN
     Dosage: UNK
     Dates: start: 20170411, end: 20170421
  5. TAPENTADOL HYDROCHLORIDE [Suspect]
     Active Substance: TAPENTADOL HYDROCHLORIDE
     Indication: CANCER PAIN
     Dosage: 25 MG, BID
     Route: 048
     Dates: start: 20170421, end: 20170514

REACTIONS (2)
  - Malignant neoplasm progression [Fatal]
  - Intestinal obstruction [Unknown]

NARRATIVE: CASE EVENT DATE: 201705
